FAERS Safety Report 21931271 (Version 3)
Quarter: 2025Q2

REPORT INFORMATION
  Report Type: Spontaneous
  Country: US (occurrence: US)
  Receive Date: 20230131
  Receipt Date: 20250529
  Transmission Date: 20250717
  Serious: No
  Sender: CIPLA
  Company Number: US-CIPLA LTD.-2022US07313

PATIENT

DRUGS (3)
  1. ALBUTEROL [Suspect]
     Active Substance: ALBUTEROL
     Indication: Dyspnoea
     Dosage: 180 MICROGRAM, QD (2 PUFFS DAILY)
     Dates: start: 20221128, end: 202211
  2. ALBUTEROL [Suspect]
     Active Substance: ALBUTEROL
     Dosage: 180 MICROGRAM, QD (2 PUFFS DAILY)
     Dates: start: 202212
  3. LEVOFLOXACIN [Concomitant]
     Active Substance: LEVOFLOXACIN
     Indication: Pneumonia
     Dosage: 750 MILLIGRAM, QD (750MG/1 IN THE MORNING)
     Route: 065

REACTIONS (7)
  - Respiratory rate decreased [Recovered/Resolved]
  - Device ineffective [Unknown]
  - Device delivery system issue [Unknown]
  - Product cleaning inadequate [Unknown]
  - Device difficult to use [Unknown]
  - Product dose omission issue [Unknown]
  - Drug dose omission by device [Unknown]

NARRATIVE: CASE EVENT DATE: 20221201
